FAERS Safety Report 5148852-4 (Version None)
Quarter: 2006Q4

REPORT INFORMATION
  Report Type: 
  Country: None (occurrence: None)
  Receive Date: 20061108
  Receipt Date: 20061026
  Transmission Date: 20070319
  Serious: Yes (Death, Other)
  Sender: FDA-Public Use
  Company Number: 2006133702

PATIENT
  Age: 63 Year
  Sex: Male

DRUGS (3)
  1. CELEBREX [Suspect]
     Dosage: ORAL
     Route: 048
  2. BEXTRA [Suspect]
     Dosage: ORAL
     Route: 048
  3. VIOXX [Suspect]
     Dosage: ORAL
     Route: 048
     Dates: start: 19990601, end: 20000325

REACTIONS (3)
  - HAEMORRHAGE INTRACRANIAL [None]
  - HYPERTENSION [None]
  - ISCHAEMIC STROKE [None]
